FAERS Safety Report 18201066 (Version 2)
Quarter: 2020Q3

REPORT INFORMATION
  Report Type: Spontaneous
  Country: US (occurrence: US)
  Receive Date: 20200827
  Receipt Date: 20200831
  Transmission Date: 20201103
  Serious: Yes (Hospitalization)
  Sender: FDA-Public Use
  Company Number: US-ALEXION-A202012358

PATIENT
  Age: 3 Year

DRUGS (1)
  1. STRENSIQ [Suspect]
     Active Substance: ASFOTASE ALFA
     Indication: PRODUCT USED FOR UNKNOWN INDICATION
     Dosage: 1.75 MG/KG, TIW
     Route: 065

REACTIONS (4)
  - Bone deformity [Unknown]
  - X-ray abnormal [Unknown]
  - Condition aggravated [Unknown]
  - Viral infection [Unknown]
